FAERS Safety Report 6172694-4 (Version None)
Quarter: 2009Q2

REPORT INFORMATION
  Report Type: 
  Country: None (occurrence: None)
  Receive Date: 20090428
  Receipt Date: 20090415
  Transmission Date: 20091009
  Serious: Yes (Hospitalization)
  Sender: FDA-Public Use
  Company Number: 280001L09JPN

PATIENT
  Age: 33 Year
  Sex: Female

DRUGS (2)
  1. UROFOLLITROPIN [Suspect]
     Indication: INFERTILITY FEMALE
  2. SEXOVID (CYCLOFENIL) [Suspect]

REACTIONS (4)
  - DRUG EXPOSURE DURING PREGNANCY [None]
  - ECTOPIC PREGNANCY [None]
  - FLUID RETENTION [None]
  - PELVIC HAEMORRHAGE [None]
